FAERS Safety Report 25649945 (Version 2)
Quarter: 2025Q3

REPORT INFORMATION
  Report Type: Report from Study
  Country: US (occurrence: US)
  Receive Date: 20250806
  Receipt Date: 20250910
  Transmission Date: 20251020
  Serious: Yes (Other)
  Sender: NOVARTIS
  Company Number: US-002147023-NVSC2024US243176

PATIENT
  Age: 74 Year
  Sex: Female

DRUGS (10)
  1. LEQVIO [Suspect]
     Active Substance: INCLISIRAN SODIUM
     Indication: Hyperlipidaemia
     Route: 058
     Dates: start: 20241206, end: 20241206
  2. LEQVIO [Suspect]
     Active Substance: INCLISIRAN SODIUM
     Route: 058
     Dates: start: 20250306, end: 20250306
  3. LEQVIO [Suspect]
     Active Substance: INCLISIRAN SODIUM
     Route: 058
  4. UNITHROID [Concomitant]
     Active Substance: LEVOTHYROXINE SODIUM
     Indication: Product used for unknown indication
     Route: 065
  5. LOSARTAN POTASSIUM [Concomitant]
     Active Substance: LOSARTAN POTASSIUM
     Indication: Product used for unknown indication
     Route: 065
  6. METOPROLOL [Concomitant]
     Active Substance: METOPROLOL
     Indication: Product used for unknown indication
     Route: 065
  7. XANAX [Concomitant]
     Active Substance: ALPRAZOLAM
     Indication: Product used for unknown indication
     Route: 065
  8. TRIAMCINOLONE [Concomitant]
     Active Substance: TRIAMCINOLONE
     Indication: Product used for unknown indication
     Route: 065
  9. HYDROCORTISONE [Concomitant]
     Active Substance: HYDROCORTISONE
     Indication: Product used for unknown indication
     Route: 065
  10. ASPIRIN [Concomitant]
     Active Substance: ASPIRIN
     Indication: Product used for unknown indication
     Route: 065

REACTIONS (21)
  - Macular oedema [Unknown]
  - Photophobia [Not Recovered/Not Resolved]
  - Ear disorder [Unknown]
  - Pruritus [Unknown]
  - Autoimmune disorder [Unknown]
  - Pain in extremity [Recovering/Resolving]
  - Pain [Recovering/Resolving]
  - Hypersensitivity [Recovering/Resolving]
  - Injection site pain [Recovered/Resolved]
  - Upper limb fracture [Recovered/Resolved]
  - Eye disorder [Not Recovered/Not Resolved]
  - Visual impairment [Recovering/Resolving]
  - Pruritus [Recovered/Resolved]
  - Skin discomfort [Recovered/Resolved]
  - Fatigue [Recovered/Resolved]
  - Dizziness [Recovered/Resolved]
  - Peripheral coldness [Recovered/Resolved]
  - Dizziness [Unknown]
  - Immune system disorder [Unknown]
  - Dry eye [Unknown]
  - Histamine level increased [Recovering/Resolving]

NARRATIVE: CASE EVENT DATE: 20250306
